FAERS Safety Report 10073177 (Version 1)
Quarter: 2014Q2

REPORT INFORMATION
  Report Type: Spontaneous
  Country: IT (occurrence: IT)
  Receive Date: 20140411
  Receipt Date: 20140411
  Transmission Date: 20141212
  Serious: Yes (Death, Hospitalization)
  Sender: FDA-Public Use
  Company Number: IT-TEVA-473150ISR

PATIENT
  Age: 67 Year
  Sex: Female

DRUGS (5)
  1. TEMOZOLOMIDE [Suspect]
     Dosage: 225 MILLIGRAM DAILY;
     Route: 065
  2. COTRIMOXAZOLE [Interacting]
     Indication: ANTIFUNGAL PROPHYLAXIS
     Dosage: 800 MILLIGRAM DAILY;
     Route: 065
  3. COTRIMOXAZOLE [Interacting]
     Indication: ANTIFUNGAL PROPHYLAXIS
     Route: 042
  4. DEXAMETHASONE [Suspect]
     Dosage: 8 MILLIGRAM DAILY;
     Route: 065
  5. INSULIN [Concomitant]
     Route: 065

REACTIONS (4)
  - Asthenia [Unknown]
  - Death [Fatal]
  - Acute interstitial pneumonitis [Fatal]
  - Drug interaction [Fatal]
